FAERS Safety Report 23994711 (Version 1)
Quarter: 2024Q2

REPORT INFORMATION
  Report Type: Spontaneous
  Country: CA (occurrence: CA)
  Receive Date: 20240620
  Receipt Date: 20240620
  Transmission Date: 20240716
  Serious: Yes (Other)
  Sender: FDA-Public Use
  Company Number: CA-FreseniusKabi-FK202409545

PATIENT
  Age: 58 Year
  Sex: Male

DRUGS (1)
  1. OXALIPLATIN [Suspect]
     Active Substance: OXALIPLATIN
     Indication: Chemotherapy
     Dosage: FREQUENCY: CYCLICAL?ROUTE OF ADMIN: INTRAVENOUS DRIP?DOSAGE FORM: SOLUTION INTRAVENOUS

REACTIONS (6)
  - Chills [Unknown]
  - Heart rate increased [Unknown]
  - Hypotension [Unknown]
  - Nausea [Unknown]
  - Pneumonia [Unknown]
  - Pyrexia [Unknown]
